FAERS Safety Report 25150014 (Version 2)
Quarter: 2025Q2

REPORT INFORMATION
  Report Type: Spontaneous
  Country: US (occurrence: US)
  Receive Date: 20250402
  Receipt Date: 20250425
  Transmission Date: 20250716
  Serious: Yes (Hospitalization)
  Sender: PFIZER
  Company Number: US-PFIZER INC-202500068594

PATIENT
  Age: 78 Year
  Sex: Male

DRUGS (2)
  1. HEPARIN SODIUM [Suspect]
     Active Substance: HEPARIN SODIUM
  2. WARFARIN [Suspect]
     Active Substance: WARFARIN
     Dates: end: 202409

REACTIONS (4)
  - Haemoglobin decreased [Unknown]
  - Syncope [Unknown]
  - Shock haemorrhagic [Unknown]
  - Condition aggravated [Unknown]
